FAERS Safety Report 25350847 (Version 1)
Quarter: 2025Q2

REPORT INFORMATION
  Report Type: Report from Study
  Country: US (occurrence: US)
  Receive Date: 20250523
  Receipt Date: 20250523
  Transmission Date: 20250716
  Serious: Yes (Disabling, Other)
  Sender: TAKEDA
  Company Number: US-TAKEDA-2025TUS047316

PATIENT
  Age: 45 Year
  Sex: Male

DRUGS (1)
  1. PONATINIB [Suspect]
     Active Substance: PONATINIB
     Indication: Product used for unknown indication

REACTIONS (1)
  - Disability [Unknown]

NARRATIVE: CASE EVENT DATE: 20250519
